FAERS Safety Report 10196640 (Version 3)
Quarter: 2014Q2

REPORT INFORMATION
  Report Type: Spontaneous
  Country: US (occurrence: US)
  Receive Date: 20140527
  Receipt Date: 20140612
  Transmission Date: 20141212
  Serious: Yes (Hospitalization, Other)
  Sender: FDA-Public Use
  Company Number: US-ASTELLAS-2014US003877

PATIENT
  Age: 68 Year
  Sex: Female

DRUGS (2)
  1. MYRBETRIQ [Suspect]
     Indication: HYPERTONIC BLADDER
     Route: 065
     Dates: start: 20140403, end: 20140408
  2. UNSPECIFIED TRADITIONAL MEDICINE [Concomitant]
     Indication: ATRIAL FIBRILLATION
     Dosage: UNK, UNKNOWN FREQ.
     Route: 065

REACTIONS (9)
  - Atrial fibrillation [Unknown]
  - Hypertension [Unknown]
  - Cardiac failure congestive [Unknown]
  - Bladder cancer [Unknown]
  - Blood urine present [Unknown]
  - Obstructive uropathy [Unknown]
  - Anaemia [Unknown]
  - Diarrhoea [Not Recovered/Not Resolved]
  - Headache [Not Recovered/Not Resolved]
